FAERS Safety Report 5110126-5 (Version None)
Quarter: 2006Q3

REPORT INFORMATION
  Report Type: 
  Country: None (occurrence: None)
  Receive Date: 20060918
  Receipt Date: 20060908
  Transmission Date: 20061208
  Serious: Yes (Hospitalization)
  Sender: FDA-Public Use
  Company Number: S06-FRA-03553-01

PATIENT
  Age: 83 Year
  Sex: Female

DRUGS (8)
  1. CITALOPRAM HYDROBROMIDE [Suspect]
     Indication: DYSTHYMIC DISORDER
     Dates: end: 20060801
  2. OFLOXACIN [Suspect]
     Indication: WOUND
     Dosage: 200 MG DAILY PO
     Route: 048
     Dates: start: 20060801, end: 20060808
  3. ZOLPIDEM TARTRATE [Suspect]
  4. OMEPRAZOLE [Suspect]
     Dosage: 20 MG QD PO
     Route: 048
     Dates: end: 20060801
  5. PLAVIX [Suspect]
     Indication: ISCHAEMIC CARDIOMYOPATHY
  6. FUCIDINE CAP [Suspect]
     Indication: WOUND
     Dosage: 500 MG TID PO
     Route: 048
     Dates: start: 20060801, end: 20060808
  7. DIGOXIN [Suspect]
  8. LANTUS [Suspect]
     Dates: end: 20060807

REACTIONS (7)
  - ALANINE AMINOTRANSFERASE INCREASED [None]
  - BLOOD ALKALINE PHOSPHATASE INCREASED [None]
  - BLOOD BILIRUBIN INCREASED [None]
  - C-REACTIVE PROTEIN INCREASED [None]
  - GAMMA-GLUTAMYLTRANSFERASE INCREASED [None]
  - JAUNDICE [None]
  - WHITE BLOOD CELL COUNT INCREASED [None]
